FAERS Safety Report 7353180-2 (Version None)
Quarter: 2011Q1

REPORT INFORMATION
  Report Type: 
  Country: None (occurrence: None)
  Receive Date: 20110315
  Receipt Date: 20110307
  Transmission Date: 20110831
  Serious: Yes (Hospitalization)
  Sender: FDA-Public Use
  Company Number: NL-MEDIMMUNE-MEDI-0012822

PATIENT
  Sex: Male
  Weight: 9.37 kg

DRUGS (2)
  1. SYNAGIS [Suspect]
     Route: 030
     Dates: start: 20100924, end: 20110207
  2. SYNAGIS [Suspect]
     Route: 030
     Dates: start: 20110307, end: 20110307

REACTIONS (6)
  - ABDOMINAL PAIN [None]
  - VOMITING [None]
  - APPENDIX DISORDER [None]
  - WEIGHT DECREASED [None]
  - PYREXIA [None]
  - ADVERSE EVENT [None]
